FAERS Safety Report 5247226-5 (Version None)
Quarter: 2007Q1

REPORT INFORMATION
  Report Type: 
  Country: None (occurrence: None)
  Receive Date: 20070220
  Receipt Date: 20070206
  Transmission Date: 20070707
  Serious: Yes (Other)
  Sender: FDA-Public Use
  Company Number: 070206-0000159

PATIENT
  Age: 48 Year
  Sex: Male

DRUGS (3)
  1. COGENTIN [Suspect]
     Indication: DRUG USE FOR UNKNOWN INDICATION
  2. RISPERIDONE [Suspect]
     Indication: DRUG USE FOR UNKNOWN INDICATION
     Dosage: Q2W; IM
     Route: 030
  3. DEPAKOTE [Suspect]
     Indication: DRUG USE FOR UNKNOWN INDICATION

REACTIONS (2)
  - RED CELL DISTRIBUTION WIDTH INCREASED [None]
  - THROMBOCYTHAEMIA [None]
